FAERS Safety Report 20446539 (Version 1)
Quarter: 2022Q1

REPORT INFORMATION
  Report Type: Report from Study
  Country: IT (occurrence: IT)
  Receive Date: 20220208
  Receipt Date: 20220208
  Transmission Date: 20220423
  Serious: Yes (Other)
  Sender: FDA-Public Use
  Company Number: IT-UCBSA-2022003156

PATIENT
  Age: 70 Year
  Sex: Male
  Weight: 80 kg

DRUGS (5)
  1. ROTIGOTINE [Suspect]
     Active Substance: ROTIGOTINE
     Indication: Product used for unknown indication
     Dosage: 8 MILLIGRAM, ONCE DAILY (QD)
     Route: 062
  2. ROTIGOTINE [Suspect]
     Active Substance: ROTIGOTINE
     Dosage: 6 MILLIGRAM, ONCE DAILY (QD)
     Dates: start: 2021
  3. ROTIGOTINE [Suspect]
     Active Substance: ROTIGOTINE
     Dosage: 8 MILLIGRAM, ONCE DAILY (QD)
  4. ROTIGOTINE [Suspect]
     Active Substance: ROTIGOTINE
     Dosage: 4 MILLIGRAM, ONCE DAILY (QD)
     Dates: end: 20220127
  5. QUETIAPINE [Concomitant]
     Active Substance: QUETIAPINE
     Indication: Hallucination

REACTIONS (5)
  - Application site pruritus [Recovered/Resolved]
  - Hallucination [Recovered/Resolved]
  - Surgery [Unknown]
  - Movement disorder [Unknown]
  - Psychomotor skills impaired [Unknown]

NARRATIVE: CASE EVENT DATE: 20191101
